FAERS Safety Report 24863109 (Version 1)
Quarter: 2025Q1

REPORT INFORMATION
  Report Type: Spontaneous
  Country: US (occurrence: US)
  Receive Date: 20250120
  Receipt Date: 20250120
  Transmission Date: 20250409
  Serious: No
  Sender: SENTISS AG
  Company Number: US-SENTISSAG-2025SAGSPO-00001

PATIENT
  Age: 69 Year
  Sex: Female

DRUGS (2)
  1. ERYTHROMYCIN [Suspect]
     Active Substance: ERYTHROMYCIN
     Indication: Corneal abrasion
     Dates: start: 20241031, end: 20241031
  2. ERYTHROMYCIN [Suspect]
     Active Substance: ERYTHROMYCIN
     Indication: Corneal abrasion
     Dates: start: 20241031, end: 20241031

REACTIONS (3)
  - Visual impairment [Unknown]
  - Drug hypersensitivity [Recovered/Resolved]
  - Product use in unapproved indication [Unknown]

NARRATIVE: CASE EVENT DATE: 20241031
